FAERS Safety Report 8134172-2 (Version None)
Quarter: 2012Q1

REPORT INFORMATION
  Report Type: 
  Country: None (occurrence: None)
  Receive Date: 20120207
  Receipt Date: 20120125
  Transmission Date: 20120608
  Serious: Yes (Other)
  Sender: FDA-Public Use
  Company Number: 2012SP004736

PATIENT
  Age: 84 Year
  Sex: Male
  Weight: 70 kg

DRUGS (8)
  1. REMERON [Suspect]
     Indication: DEPRESSION
     Dosage: QD;PO, QD;PO
     Route: 048
     Dates: start: 20101101
  2. REMERON [Suspect]
     Indication: DEPRESSION
     Dosage: QD;PO, QD;PO
     Route: 048
     Dates: start: 20101209
  3. METOPROLOL SUCCINATE [Concomitant]
  4. PANTOPRAZOLE [Concomitant]
  5. ATORVASTATIN [Concomitant]
  6. EXELON [Concomitant]
  7. LEXAPRO [Concomitant]
  8. PRADAXA [Concomitant]

REACTIONS (6)
  - NERVOUSNESS [None]
  - WRONG TECHNIQUE IN DRUG USAGE PROCESS [None]
  - BRAIN STEM STROKE [None]
  - BRAIN STEM ISCHAEMIA [None]
  - CONFUSIONAL STATE [None]
  - AGITATION [None]
